FAERS Safety Report 8185242-4 (Version None)
Quarter: 2012Q1

REPORT INFORMATION
  Report Type: 
  Country: None (occurrence: None)
  Receive Date: 20120305
  Receipt Date: 20120224
  Transmission Date: 20120608
  Serious: Yes (Hospitalization)
  Sender: FDA-Public Use
  Company Number: PHHY2012FR016516

PATIENT
  Sex: Female

DRUGS (7)
  1. PRIMPERAN TAB [Concomitant]
     Dates: start: 20120121, end: 20120126
  2. NICARDIPINE HYDROCHLORIDE [Suspect]
     Indication: HYPERTENSION
     Dosage: 2 MG, QH
     Dates: start: 20120124
  3. ACUPAN [Suspect]
     Dosage: 100 MG, UNK
     Route: 042
     Dates: start: 20120120, end: 20120125
  4. BRIMONIDINE TARTRATE [Concomitant]
     Dosage: 1 DF, DAILY
     Dates: start: 20120125, end: 20120128
  5. LOVENOX [Concomitant]
     Dosage: 1 DF, DAILY
     Dates: end: 20120130
  6. ZANTAC [Suspect]
     Dosage: 3 DF, DAILY
     Route: 042
     Dates: start: 20120124, end: 20120125
  7. ACETAMINOPHEN [Concomitant]
     Dosage: 1 G, Q8H
     Dates: start: 20120120

REACTIONS (2)
  - CONFUSIONAL STATE [None]
  - DISORIENTATION [None]
